FAERS Safety Report 9806553 (Version 1)
Quarter: 2014Q1

REPORT INFORMATION
  Report Type: Report from Study
  Country: DE (occurrence: DE)
  Receive Date: 20140109
  Receipt Date: 20140109
  Transmission Date: 20141002
  Serious: Yes (Other)
  Sender: FDA-Public Use
  Company Number: DE-BAXTER-2014BAX001198

PATIENT
  Sex: 0

DRUGS (1)
  1. TISSUCOL DUO S 0,5ML IMMUNO [Suspect]
     Indication: VASCULAR PSEUDOANEURYSM

REACTIONS (1)
  - Deep vein thrombosis [Unknown]
